FAERS Safety Report 9478700 (Version 1)
Quarter: 2013Q3

REPORT INFORMATION
  Report Type: Spontaneous
  Country: US (occurrence: None)
  Receive Date: 20130827
  Receipt Date: 20130827
  Transmission Date: 20140515
  Serious: Yes (Disabling, Other)
  Sender: FDA-Public Use
  Company Number: None

PATIENT
  Age: 49 Year
  Sex: Female
  Weight: 48.99 kg

DRUGS (11)
  1. BUPIVICAINE [Suspect]
     Indication: BACK PAIN
     Dosage: BUPIVICAINE  INTRATHECALLY FOR PAIN PUMP  24 HRS/DAY  IMPLANTED?DOSAGE VARIED - CHANGED - APPTS.
     Route: 037
     Dates: start: 20130402, end: 20130724
  2. BUPIVICAINE [Suspect]
     Indication: SPINAL FUSION SURGERY
     Dosage: BUPIVICAINE  INTRATHECALLY FOR PAIN PUMP  24 HRS/DAY  IMPLANTED?DOSAGE VARIED - CHANGED - APPTS.
     Route: 037
     Dates: start: 20130402, end: 20130724
  3. FENTYNAL [Suspect]
     Dosage: FENTYNAL  INTRATHECALLY FOR PAIN PUMP  24 HRS/DAY  IMPLANTED?DOSAGE VARIED - CHANGED APPTS.
     Route: 037
     Dates: start: 20130402, end: 20130724
  4. LEXAPRO [Concomitant]
  5. PRAVASTATIN [Concomitant]
  6. PROLIA [Concomitant]
  7. ASPIRIN [Concomitant]
  8. POTASSIUM [Concomitant]
  9. HORIZANT [Concomitant]
  10. CLONAZAPAM [Concomitant]
  11. VIT D W/ CALCIUM [Concomitant]

REACTIONS (4)
  - Nausea [None]
  - Headache [None]
  - Musculoskeletal stiffness [None]
  - Bedridden [None]
